FAERS Safety Report 10006645 (Version 1)
Quarter: 2014Q1

REPORT INFORMATION
  Report Type: Spontaneous
  Country: US (occurrence: US)
  Receive Date: 20140313
  Receipt Date: 20140313
  Transmission Date: 20141002
  Serious: No
  Sender: FDA-Public Use
  Company Number: US-PFIZER INC-2014069126

PATIENT
  Sex: Female

DRUGS (9)
  1. DIFLUCAN [Suspect]
     Dosage: UNK
  2. SINEQUAN [Suspect]
     Dosage: UNK
  3. BACTRIM [Suspect]
     Dosage: UNK
  4. DILAUDID [Suspect]
     Dosage: UNK
  5. ERYTHROMYCIN BASE [Suspect]
     Dosage: UNK
  6. FERROUS SULFATE [Suspect]
     Dosage: UNK
  7. LEVAQUIN [Suspect]
     Dosage: UNK
  8. PHENERGAN [Suspect]
     Dosage: UNK
  9. SULFUR DIOXIDE [Suspect]
     Dosage: UNK

REACTIONS (1)
  - Drug hypersensitivity [Unknown]
